FAERS Safety Report 6669192-8 (Version None)
Quarter: 2010Q2

REPORT INFORMATION
  Report Type: 
  Country: None (occurrence: None)
  Receive Date: 20100406
  Receipt Date: 20100330
  Transmission Date: 20101027
  Serious: Yes (Other)
  Sender: FDA-Public Use
  Company Number: JP-B.I. PHARMACEUTICALS,INC./RIDGEFIELD-2010-BP-03718NB

PATIENT
  Age: 44 Year
  Sex: Male

DRUGS (4)
  1. MICARDIS [Suspect]
     Indication: HYPERTENSION
     Dosage: 40 MG
     Route: 048
  2. LIPITOR [Suspect]
     Indication: HYPERLIPIDAEMIA
     Dosage: 10 MG
     Route: 048
  3. SALOBEL [Suspect]
     Indication: HYPERURICAEMIA
     Route: 048
  4. CONTAC [Suspect]
     Indication: RHINITIS
     Route: 048
     Dates: start: 20100319, end: 20100323

REACTIONS (1)
  - LOSS OF CONSCIOUSNESS [None]
